FAERS Safety Report 9216035 (Version 2)
Quarter: 2013Q2

REPORT INFORMATION
  Report Type: Spontaneous
  Country: US (occurrence: US)
  Receive Date: 20130408
  Receipt Date: 20130419
  Transmission Date: 20140414
  Serious: Yes (Death)
  Sender: FDA-Public Use
  Company Number: US-JNJFOC-20130402614

PATIENT
  Sex: 0

DRUGS (20)
  1. DOXORUBICIN [Suspect]
     Indication: HODGKIN^S DISEASE
     Route: 042
  2. DOXORUBICIN [Suspect]
     Indication: HODGKIN^S DISEASE
     Route: 042
  3. MECHLORETHAMINE [Suspect]
     Indication: HODGKIN^S DISEASE
     Route: 065
  4. MECHLORETHAMINE [Suspect]
     Indication: HODGKIN^S DISEASE
     Route: 065
  5. PROCARBAZINE [Suspect]
     Indication: HODGKIN^S DISEASE
     Route: 065
  6. PROCARBAZINE [Suspect]
     Indication: HODGKIN^S DISEASE
     Route: 065
  7. VINCRISTINE [Suspect]
     Indication: HODGKIN^S DISEASE
     Route: 065
  8. VINCRISTINE [Suspect]
     Indication: HODGKIN^S DISEASE
     Route: 065
  9. PREDNISONE [Suspect]
     Indication: HODGKIN^S DISEASE
     Route: 065
  10. PREDNISONE [Suspect]
     Indication: HODGKIN^S DISEASE
     Route: 065
  11. BLEOMYCIN [Suspect]
     Indication: HODGKIN^S DISEASE
     Route: 065
  12. BLEOMYCIN [Suspect]
     Indication: HODGKIN^S DISEASE
     Route: 065
  13. VINBLASTIN [Suspect]
     Indication: HODGKIN^S DISEASE
     Route: 065
  14. VINBLASTIN [Suspect]
     Indication: HODGKIN^S DISEASE
     Route: 065
  15. DACARBAZINE [Suspect]
     Indication: HODGKIN^S DISEASE
     Route: 065
  16. ETOPOSIDE [Suspect]
     Indication: HODGKIN^S DISEASE
     Route: 065
  17. CISPLATIN [Suspect]
     Indication: HODGKIN^S DISEASE
     Route: 065
  18. CYTARABINE [Suspect]
     Indication: HODGKIN^S DISEASE
     Route: 065
  19. DEXAMETHASONE [Suspect]
     Indication: HODGKIN^S DISEASE
     Route: 065
  20. RADIOTHERAPY [Suspect]
     Indication: HODGKIN^S DISEASE
     Route: 065

REACTIONS (2)
  - Acute myeloid leukaemia [Fatal]
  - Myelodysplastic syndrome [Fatal]
